FAERS Safety Report 25754738 (Version 1)
Quarter: 2025Q3

REPORT INFORMATION
  Report Type: Spontaneous
  Country: EU (occurrence: EU)
  Receive Date: 20250903
  Receipt Date: 20250903
  Transmission Date: 20251021
  Serious: Yes (Hospitalization)
  Sender: JOHNSON AND JOHNSON
  Company Number: EU-JNJFOC-20250836253

PATIENT
  Sex: Male

DRUGS (1)
  1. APALUTAMIDE [Suspect]
     Active Substance: APALUTAMIDE
     Indication: Hormone-dependent prostate cancer
     Dosage: FOR 3 MONTHS
     Route: 048

REACTIONS (4)
  - Hospitalisation [Unknown]
  - Taste disorder [Unknown]
  - Diarrhoea [Unknown]
  - Weight decreased [Unknown]
